FAERS Safety Report 16424438 (Version 1)
Quarter: 2019Q2

REPORT INFORMATION
  Report Type: Spontaneous
  Country: FR (occurrence: FR)
  Receive Date: 20190613
  Receipt Date: 20190613
  Transmission Date: 20190711
  Serious: Yes (Death, Hospitalization)
  Sender: FDA-Public Use
  Company Number: FR-BAYER-2019-109268

PATIENT
  Age: 70 Year
  Sex: Male
  Weight: 70 kg

DRUGS (2)
  1. GADOVIST [Suspect]
     Active Substance: GADOBUTROL
     Indication: NUCLEAR MAGNETIC RESONANCE IMAGING BRAIN
     Dosage: 15 ML, UNK
     Route: 042
  2. IOMERON [Suspect]
     Active Substance: IOMEPROL
     Indication: COMPUTERISED TOMOGRAM
     Dosage: 1 DF, UNK
     Route: 042

REACTIONS (8)
  - Gastrointestinal disorder [Not Recovered/Not Resolved]
  - Jaundice [Recovering/Resolving]
  - Renal failure [Recovering/Resolving]
  - Cholestasis [Recovering/Resolving]
  - Transaminases increased [Recovering/Resolving]
  - Decreased appetite [Not Recovered/Not Resolved]
  - Chromaturia [Not Recovered/Not Resolved]
  - Acute hepatic failure [Fatal]

NARRATIVE: CASE EVENT DATE: 201802
